FAERS Safety Report 4922746-9 (Version None)
Quarter: 2006Q1

REPORT INFORMATION
  Report Type: 
  Country: None (occurrence: None)
  Receive Date: 20060221
  Receipt Date: 20060210
  Transmission Date: 20060701
  Serious: Yes (Hospitalization)
  Sender: FDA-Public Use
  Company Number: S05-GER-01336-01

PATIENT
  Age: 78 Year
  Sex: Female

DRUGS (4)
  1. MEMANTINE HCL [Suspect]
     Indication: DEMENTIA
     Dosage: 5 MG QD PO
     Route: 048
     Dates: start: 20050224, end: 20050304
  2. MEMANTINE HCL [Suspect]
     Indication: DEMENTIA
     Dosage: 10 MG PO
     Route: 048
     Dates: start: 20050305, end: 20050306
  3. VERAPAMIL [Concomitant]
  4. ISOSORBIDE DINITRATE [Concomitant]

REACTIONS (3)
  - CARDIOVASCULAR DISORDER [None]
  - DIZZINESS [None]
  - FALL [None]
